FAERS Safety Report 8977946 (Version 1)
Quarter: 2012Q4

REPORT INFORMATION
  Report Type: Report from Study
  Country: CA (occurrence: CA)
  Receive Date: 20121220
  Receipt Date: 20121220
  Transmission Date: 20130627
  Serious: Yes (Hospitalization, Other)
  Sender: FDA-Public Use
  Company Number: CA-ROCHE-1171848

PATIENT
  Age: 58 Year
  Sex: Male

DRUGS (1)
  1. XOLAIR [Suspect]
     Indication: ASTHMA
     Dosage: 225 mg, UNK
     Route: 058

REACTIONS (12)
  - Respiratory tract infection [Recovered/Resolved]
  - Asthma [Recovered/Resolved]
  - Tremor [Recovering/Resolving]
  - Pruritus [Recovered/Resolved]
  - Painful respiration [Recovered/Resolved]
  - Hypersensitivity [Unknown]
  - Chest pain [Unknown]
  - Muscle spasms [Unknown]
  - Insomnia [Unknown]
  - Burning sensation [Unknown]
  - Seasonal allergy [Unknown]
  - Poor quality sleep [Unknown]
